FAERS Safety Report 25838896 (Version 1)
Quarter: 2025Q3

REPORT INFORMATION
  Report Type: Spontaneous
  Country: US (occurrence: US)
  Receive Date: 20250924
  Receipt Date: 20250924
  Transmission Date: 20251020
  Serious: No
  Sender: ROCHE
  Company Number: US-ROCHE-10000390208

PATIENT
  Sex: Female

DRUGS (1)
  1. XOLAIR [Suspect]
     Active Substance: OMALIZUMAB
     Indication: Idiopathic urticaria
     Dosage: EVERY 4 WEEKS?300MG/2ML
     Route: 058
     Dates: start: 202307

REACTIONS (4)
  - Skin irritation [Unknown]
  - Device defective [Unknown]
  - Device leakage [Unknown]
  - Product dose omission issue [Unknown]
